FAERS Safety Report 7174815-3 (Version None)
Quarter: 2010Q4

REPORT INFORMATION
  Report Type: 
  Country: None (occurrence: None)
  Receive Date: 20101219
  Receipt Date: 20100421
  Transmission Date: 20110411
  Serious: Yes (Other)
  Sender: FDA-Public Use
  Company Number: US-AMGEN-QUU394658

PATIENT

DRUGS (1)
  1. ENBREL [Suspect]
     Indication: RHEUMATOID ARTHRITIS
     Dosage: 50 MG, QWK
     Route: 058
     Dates: start: 20040101, end: 20100223

REACTIONS (8)
  - ACUTE PROMYELOCYTIC LEUKAEMIA [None]
  - CONTUSION [None]
  - DECREASED APPETITE [None]
  - FALL [None]
  - INJECTION SITE HAEMATOMA [None]
  - INJECTION SITE REACTION [None]
  - INTERVERTEBRAL DISC DISORDER [None]
  - JOINT SWELLING [None]
